FAERS Safety Report 11180791 (Version 1)
Quarter: 2015Q2

REPORT INFORMATION
  Report Type: Spontaneous
  Country: DE (occurrence: DE)
  Receive Date: 20150611
  Receipt Date: 20150611
  Transmission Date: 20150821
  Serious: Yes (Congenital Anomaly)
  Sender: FDA-Public Use
  Company Number: DE-WATSON-2015-11063

PATIENT
  Sex: Male

DRUGS (5)
  1. TOPIRAMATE (UNKNOWN) [Suspect]
     Active Substance: TOPIRAMATE
     Indication: EPILEPSY
     Dosage: 25 MG, DAILY
     Route: 064
     Dates: start: 20131123, end: 20140818
  2. LEVETIRACETAM (UNKNOWN) [Suspect]
     Active Substance: LEVETIRACETAM
     Indication: EPILEPSY
     Dosage: 500 MG, BID
     Route: 064
     Dates: start: 20131123, end: 20140818
  3. FERROUS                            /00023501/ [Concomitant]
     Indication: IRON DEFICIENCY ANAEMIA
     Dosage: UNK UNK, UNKNOWN, 2ND AND 3RD TRIMESTER
     Route: 064
  4. JODID [Concomitant]
     Active Substance: IODINE
     Indication: IODINE DEFICIENCY
     Dosage: UNK UNK, UNKNOWN, UNKNOWN TRIMESTER
     Route: 064
  5. ASPIRIN. [Concomitant]
     Active Substance: ASPIRIN
     Indication: FACTOR V DEFICIENCY
     Dosage: 100 MG, DAILY
     Route: 064
     Dates: start: 20131123, end: 20140818

REACTIONS (2)
  - Dysmorphism [Not Recovered/Not Resolved]
  - Foetal exposure during pregnancy [Not Recovered/Not Resolved]

NARRATIVE: CASE EVENT DATE: 20140818
